FAERS Safety Report 25618774 (Version 1)
Quarter: 2025Q3

REPORT INFORMATION
  Report Type: Spontaneous
  Country: US (occurrence: US)
  Receive Date: 20250729
  Receipt Date: 20250729
  Transmission Date: 20251020
  Serious: No
  Sender: NOVARTIS
  Company Number: US-002147023-NVSC2025US119431

PATIENT

DRUGS (5)
  1. SIMULECT [Suspect]
     Active Substance: BASILIXIMAB
     Indication: Product used for unknown indication
     Route: 065
  2. SIMULECT [Suspect]
     Active Substance: BASILIXIMAB
     Route: 065
  3. SIMULECT [Suspect]
     Active Substance: BASILIXIMAB
     Route: 065
  4. SIMULECT [Suspect]
     Active Substance: BASILIXIMAB
     Route: 065
  5. SIMULECT [Suspect]
     Active Substance: BASILIXIMAB
     Route: 065

REACTIONS (1)
  - Product storage error [Unknown]
